FAERS Safety Report 20573126 (Version 1)
Quarter: 2022Q1

REPORT INFORMATION
  Report Type: Spontaneous
  Country: US (occurrence: None)
  Receive Date: 20220309
  Receipt Date: 20220309
  Transmission Date: 20220423
  Serious: No
  Sender: FDA-Public Use
  Company Number: None

PATIENT
  Age: 68 Year
  Sex: Female
  Weight: 91.8 kg

DRUGS (7)
  1. AMITRIPTYLINE [Suspect]
     Active Substance: AMITRIPTYLINE
     Indication: Depression
     Dosage: OTHER QUANTITY : 60 TABLET(S);?OTHER FREQUENCY : ONCE IN EVENING;?
     Route: 048
     Dates: start: 20220304, end: 20220305
  2. AMITRIPTYLINE [Suspect]
     Active Substance: AMITRIPTYLINE
     Indication: Nerve injury
  3. omeprazole 40 mg twice a day [Concomitant]
  4. metronidazole 250 mg three times a day for 14 days [Concomitant]
  5. synthroid 120 mg once a day [Concomitant]
  6. GasX 250 mg four times a day [Concomitant]
  7. MAGNESIUM [Concomitant]
     Active Substance: MAGNESIUM

REACTIONS (4)
  - Rash [None]
  - Skin disorder [None]
  - Erythema [None]
  - Skin swelling [None]

NARRATIVE: CASE EVENT DATE: 20220305
